FAERS Safety Report 21189976 (Version 1)
Quarter: 2022Q3

REPORT INFORMATION
  Report Type: Spontaneous
  Country: CA (occurrence: CA)
  Receive Date: 20220809
  Receipt Date: 20220809
  Transmission Date: 20221026
  Serious: No
  Sender: FDA-Public Use
  Company Number: CA-GSK-CA2022AMR115263

PATIENT

DRUGS (3)
  1. SOTROVIMAB [Suspect]
     Active Substance: SOTROVIMAB
     Indication: SARS-CoV-2 test positive
     Dosage: UNK
     Route: 042
  2. SOTROVIMAB [Suspect]
     Active Substance: SOTROVIMAB
     Indication: Immunodeficiency
  3. ADVIL [Concomitant]
     Active Substance: IBUPROFEN
     Indication: Product used for unknown indication
     Dosage: UNK

REACTIONS (9)
  - Abdominal pain lower [Unknown]
  - Chest discomfort [Unknown]
  - Chills [Unknown]
  - Cough [Unknown]
  - Diarrhoea [Unknown]
  - Eye pruritus [Unknown]
  - Heart rate increased [Unknown]
  - Night sweats [Unknown]
  - Urinary tract infection [Unknown]
